FAERS Safety Report 6366341-6 (Version None)
Quarter: 2009Q3

REPORT INFORMATION
  Report Type: 
  Country: None (occurrence: None)
  Receive Date: 20090921
  Receipt Date: 20090909
  Transmission Date: 20100115
  Serious: Yes (Death)
  Sender: FDA-Public Use
  Company Number: BE-NOVOPROD-291000

PATIENT
  Age: 82 Year
  Sex: Female
  Weight: 52 kg

DRUGS (6)
  1. NOVOMIX 30 PENFILL 3 ML [Suspect]
     Indication: INSULIN-REQUIRING TYPE 2 DIABETES MELLITUS
     Dosage: 30 IU, QD
     Route: 058
     Dates: start: 20090112
  2. NOVOMIX 50 PENFILL [Suspect]
     Indication: INSULIN-REQUIRING TYPE 2 DIABETES MELLITUS
     Dosage: 18 IU, QD
     Route: 058
     Dates: start: 20090112
  3. CREON [Concomitant]
     Dosage: 1 UNK, QID
  4. TEVETEN                            /01347301/ [Concomitant]
     Dosage: 600 MG, QD
  5. EMCORETIC [Concomitant]
     Dosage: 1 UNK, QD
  6. TEMESTA                            /00273201/ [Concomitant]
     Dosage: 1.25 MG, QD IN THE EVENING

REACTIONS (2)
  - CEREBROVASCULAR ACCIDENT [None]
  - HYPOGLYCAEMIA [None]
